FAERS Safety Report 13017351 (Version 1)
Quarter: 2016Q4

REPORT INFORMATION
  Report Type: Spontaneous
  Country: FR (occurrence: FR)
  Receive Date: 20161212
  Receipt Date: 20161212
  Transmission Date: 20170207
  Serious: Yes (Other)
  Sender: FDA-Public Use
  Company Number: FR-PFIZER INC-2016569440

PATIENT
  Age: 78 Year
  Sex: Female

DRUGS (4)
  1. TARGOCID [Concomitant]
     Active Substance: TEICOPLANIN
     Indication: MEDICAL DEVICE SITE INFECTION
     Dosage: UNK
     Dates: start: 20160819, end: 20160930
  2. INVANZ [Suspect]
     Active Substance: ERTAPENEM SODIUM
     Indication: MEDICAL DEVICE SITE INFECTION
     Dosage: 2 G, 1X/DAY
     Route: 042
     Dates: start: 20160805, end: 20160930
  3. TAZOCILLINE [Suspect]
     Active Substance: PIPERACILLIN SODIUM\TAZOBACTAM SODIUM
     Indication: MEDICAL DEVICE SITE INFECTION
     Dosage: 12 G, 1X/DAY
     Route: 042
     Dates: start: 20160801, end: 20160805
  4. VANCOMYCIN HCL [Suspect]
     Active Substance: VANCOMYCIN HYDROCHLORIDE
     Indication: MEDICAL DEVICE SITE INFECTION
     Dosage: UNK
     Route: 042
     Dates: start: 20160801, end: 20160819

REACTIONS (1)
  - Tooth discolouration [Recovering/Resolving]

NARRATIVE: CASE EVENT DATE: 201608
